FAERS Safety Report 8145472-4 (Version None)
Quarter: 2012Q1

REPORT INFORMATION
  Report Type: 
  Country: None (occurrence: None)
  Receive Date: 20120217
  Receipt Date: 20120206
  Transmission Date: 20120608
  Serious: Yes (Life-Threatening)
  Sender: FDA-Public Use
  Company Number: -MYLANLABS-2012S1002613

PATIENT
  Sex: Male

DRUGS (4)
  1. BACLOFEN [Suspect]
  2. BACLOFEN [Suspect]
     Indication: MUSCLE SPASMS
  3. CITALOPRAM HYDROBROMIDE [Concomitant]
     Indication: PRODUCT USED FOR UNKNOWN INDICATION
  4. LAMOTRIGINE [Concomitant]
     Indication: PRODUCT USED FOR UNKNOWN INDICATION

REACTIONS (1)
  - STATUS EPILEPTICUS [None]
